FAERS Safety Report 23240893 (Version 1)
Quarter: 2023Q4

REPORT INFORMATION
  Report Type: Spontaneous
  Country: US (occurrence: US)
  Receive Date: 20231129
  Receipt Date: 20231129
  Transmission Date: 20240109
  Serious: Yes (Death)
  Sender: FDA-Public Use
  Company Number: US-AMNEAL PHARMACEUTICALS-2023-AMRX-04054

PATIENT
  Sex: Female

DRUGS (3)
  1. RYTARY [Suspect]
     Active Substance: CARBIDOPA\LEVODOPA
     Indication: Product used for unknown indication
     Dosage: 61.25-245MG, 2 CAPSULES BY MOUTH THREE TIMES A DAY
     Route: 048
  2. RYTARY [Suspect]
     Active Substance: CARBIDOPA\LEVODOPA
     Dosage: 48.75-195MG, 2 CAPSULES THREE TIMES A DAY
     Route: 048
     Dates: start: 20230614
  3. RYTARY [Suspect]
     Active Substance: CARBIDOPA\LEVODOPA
     Dosage: 36.25-145MG, 2 CAPSULES BY MOUTH FOUR TIMES A DAY
     Route: 048
     Dates: start: 20231012

REACTIONS (1)
  - Adverse event [Fatal]
